FAERS Safety Report 14915094 (Version 1)
Quarter: 2018Q2

REPORT INFORMATION
  Report Type: Spontaneous
  Country: US (occurrence: US)
  Receive Date: 20180501
  Receipt Date: 20180501
  Transmission Date: 20180711
  Serious: Yes (Hospitalization)
  Sender: FDA-Public Use
  Company Number: None

PATIENT
  Sex: Female

DRUGS (11)
  1. TACROLIMUS. [Suspect]
     Active Substance: TACROLIMUS
     Indication: LIVER TRANSPLANT
     Route: 048
     Dates: start: 20180213
  2. LEVOCETIRIZINE 5MG [Concomitant]
     Active Substance: LEVOCETIRIZINE
  3. ALLOPURINOL 100MG [Concomitant]
     Active Substance: ALLOPURINOL
  4. FLUTICASONE 50MG NASAL SPRAY [Concomitant]
  5. TRIAMCINOLONE 0.1% OINTMENT [Concomitant]
  6. URSODIOL 300MG [Concomitant]
  7. VALGANCICLOVIR 450MG [Concomitant]
     Active Substance: VALACYCLOVIR HYDROCHLORIDE
  8. VESICARE 5MG [Concomitant]
     Active Substance: SOLIFENACIN SUCCINATE
  9. NOVOLOG 100 UNIT [Concomitant]
  10. MYCOPHENOLIC [Suspect]
     Active Substance: MYCOPHENOLIC ACID
     Indication: LIVER TRANSPLANT
     Route: 048
     Dates: start: 20180213
  11. PANTOPRAZOLE 40MG [Concomitant]
     Active Substance: PANTOPRAZOLE SODIUM

REACTIONS (3)
  - Drug hypersensitivity [None]
  - Alopecia [None]
  - Diarrhoea [None]
